FAERS Safety Report 20546815 (Version 2)
Quarter: 2022Q2

REPORT INFORMATION
  Report Type: Spontaneous
  Country: RU (occurrence: None)
  Receive Date: 20220303
  Receipt Date: 20220406
  Transmission Date: 20220720
  Serious: Yes (Other)
  Sender: FDA-Public Use
  Company Number: RU-ROCHE-3039577

PATIENT
  Age: 61 Year
  Sex: Female

DRUGS (2)
  1. ZELBORAF [Suspect]
     Active Substance: VEMURAFENIB
     Indication: Product used for unknown indication
     Route: 048
     Dates: start: 201708
  2. COBIMETINIB [Suspect]
     Active Substance: COBIMETINIB
     Indication: Product used for unknown indication
     Route: 065

REACTIONS (4)
  - Mesenteric vein thrombosis [Unknown]
  - Gingivitis [Unknown]
  - Diarrhoea [Unknown]
  - Anaemia [Unknown]

NARRATIVE: CASE EVENT DATE: 20180501
